FAERS Safety Report 6997559-7 (Version None)
Quarter: 2010Q3

REPORT INFORMATION
  Report Type: 
  Country: None (occurrence: None)
  Receive Date: 20100918
  Receipt Date: 20091104
  Transmission Date: 20110219
  Serious: No
  Sender: FDA-Public Use
  Company Number: US-WYE-H12066809

PATIENT
  Sex: Male
  Weight: 97.61 kg

DRUGS (6)
  1. PRISTIQ [Suspect]
     Indication: DEPRESSION
     Route: 048
     Dates: start: 20090301, end: 20091102
  2. PRISTIQ [Suspect]
     Route: 048
     Dates: start: 20091103
  3. NEXIUM [Concomitant]
  4. NEURONTIN [Concomitant]
  5. WELLBUTRIN [Concomitant]
  6. FLOMAX [Concomitant]

REACTIONS (3)
  - ASTHENIA [None]
  - FATIGUE [None]
  - NERVOUSNESS [None]
